FAERS Safety Report 4657771-9 (Version None)
Quarter: 2005Q2

REPORT INFORMATION
  Report Type: 
  Country: None (occurrence: None)
  Receive Date: 20050510
  Receipt Date: 20050426
  Transmission Date: 20051028
  Serious: Yes (Other)
  Sender: FDA-Public Use
  Company Number: PT-GLAXOSMITHKLINE-B0379702A

PATIENT
  Age: 27 Year
  Sex: Female
  Weight: 54 kg

DRUGS (2)
  1. ANTIGRIPPINE (PPA) [Suspect]
     Route: 048
     Dates: start: 20050328, end: 20050329
  2. LORATADINE [Concomitant]
     Route: 048

REACTIONS (6)
  - HEMIPARESIS [None]
  - HYPOREFLEXIA [None]
  - PARAESTHESIA [None]
  - SOMNOLENCE [None]
  - TOOTHACHE [None]
  - TRISMUS [None]
